FAERS Safety Report 5874879-0 (Version None)
Quarter: 2008Q3

REPORT INFORMATION
  Report Type: 
  Country: None (occurrence: None)
  Receive Date: 20080904
  Receipt Date: 20080820
  Transmission Date: 20090109
  Serious: Yes (Hospitalization)
  Sender: FDA-Public Use
  Company Number: AZADE200800282

PATIENT
  Age: 68 Year
  Sex: Female

DRUGS (2)
  1. VIDAZA [Suspect]
     Indication: ACUTE MYELOID LEUKAEMIA
     Dosage: (132 MG, DAILY X 5), SUBCUTANEOUS, (132 MG, DAILY X 5), SUBCUTANEOUS
     Route: 058
     Dates: end: 20080801
  2. VIDAZA [Suspect]
     Indication: ACUTE MYELOID LEUKAEMIA
     Dosage: (132 MG, DAILY X 5), SUBCUTANEOUS, (132 MG, DAILY X 5), SUBCUTANEOUS
     Route: 058
     Dates: start: 20080623

REACTIONS (2)
  - ANAL FISSURE [None]
  - HAEMORRHOIDS [None]
